FAERS Safety Report 14087176 (Version 1)
Quarter: 2017Q4

REPORT INFORMATION
  Report Type: Spontaneous
  Country: US (occurrence: US)
  Receive Date: 20171013
  Receipt Date: 20171013
  Transmission Date: 20180321
  Serious: No
  Sender: FDA-Public Use
  Company Number: US-BAYER-2017-197704

PATIENT
  Age: 84 Year
  Sex: Female
  Weight: 90.98 kg

DRUGS (1)
  1. MIRALAX [Suspect]
     Active Substance: POLYETHYLENE GLYCOL 3350
     Indication: GASTROINTESTINAL DISORDER
     Dosage: 1 DF, OM
     Route: 048

REACTIONS (3)
  - Product use complaint [Unknown]
  - Product taste abnormal [Unknown]
  - Poor quality drug administered [Unknown]
